FAERS Safety Report 23173859 (Version 4)
Quarter: 2024Q4

REPORT INFORMATION
  Report Type: Spontaneous
  Country: US (occurrence: US)
  Receive Date: 20231111
  Receipt Date: 20241224
  Transmission Date: 20250114
  Serious: Yes (Hospitalization)
  Sender: SANOFI AVENTIS
  Company Number: US-SA-SAC20231109000618

PATIENT
  Age: 81 Year
  Sex: Male

DRUGS (2)
  1. DUPIXENT [Suspect]
     Active Substance: DUPILUMAB
     Indication: Asthma
     Dosage: 300 MG, QOW
     Route: 058
     Dates: start: 202110
  2. OFEV [Concomitant]
     Active Substance: NINTEDANIB
     Dosage: UNK

REACTIONS (3)
  - Cardiac operation [Unknown]
  - Gastrointestinal disorder [Unknown]
  - Diarrhoea [Unknown]

NARRATIVE: CASE EVENT DATE: 20240929
